FAERS Safety Report 19502712 (Version 2)
Quarter: 2022Q1

REPORT INFORMATION
  Report Type: Spontaneous
  Country: TN (occurrence: TN)
  Receive Date: 20210707
  Receipt Date: 20220107
  Transmission Date: 20220423
  Serious: Yes (Death)
  Sender: FDA-Public Use
  Company Number: TN-PFIZER INC-2021770097

PATIENT
  Weight: 1 kg

DRUGS (2)
  1. CABERGOLINE [Suspect]
     Active Substance: CABERGOLINE
     Indication: Prolactin-producing pituitary tumour
     Dosage: 3 MG, WEEKLY
     Route: 064
     Dates: start: 201411, end: 201811
  2. BROMOCRIPTINE [Suspect]
     Active Substance: BROMOCRIPTINE
     Indication: Prolactin-producing pituitary tumour
     Dosage: UNK
     Route: 064
     Dates: start: 201903

REACTIONS (2)
  - Maternal exposure during pregnancy [Fatal]
  - Premature delivery [Fatal]

NARRATIVE: CASE EVENT DATE: 20190501
